FAERS Safety Report 5871972-3 (Version None)
Quarter: 2008Q3

REPORT INFORMATION
  Report Type: 
  Country: None (occurrence: None)
  Receive Date: 20080905
  Receipt Date: 20080826
  Transmission Date: 20090109
  Serious: Yes (Other)
  Sender: FDA-Public Use
  Company Number: CH-WATSON-2008-05147

PATIENT
  Age: 58 Year
  Sex: Male

DRUGS (1)
  1. PREDNISOLONE ACETATE [Suspect]
     Indication: POLYP
     Dosage: 60 MG, SINGLE
     Route: 048

REACTIONS (1)
  - ACUTE GENERALISED EXANTHEMATOUS PUSTULOSIS [None]
